FAERS Safety Report 4682117-X (Version None)
Quarter: 2005Q2

REPORT INFORMATION
  Report Type: 
  Country: None (occurrence: None)
  Receive Date: 20050603
  Receipt Date: 20050603
  Transmission Date: 20051028
  Serious: Yes (Hospitalization)
  Sender: FDA-Public Use
  Company Number: None

PATIENT
  Sex: Male
  Weight: 63.05 kg

DRUGS (7)
  1. GEMCITABINE    100MG/ML     LILLY [Suspect]
     Indication: PANCREATIC CARCINOMA
     Dosage: 1000MG/M2 +      DAY 1 + 15   INTRAVENOU
     Route: 042
     Dates: start: 20050414, end: 20050526
  2. CISPLATIN [Suspect]
     Indication: PANCREATIC CARCINOMA
     Dates: start: 20050414, end: 20050526
  3. BEVACIZUMAB    25MG/ML     GENENTECH [Suspect]
     Indication: PANCREATIC CARCINOMA
     Dosage: 10MG/KG     DAY 1 + 15    INTRAVENOU
     Route: 042
     Dates: start: 20050414, end: 20050526
  4. MORPHINE SULFATE [Concomitant]
  5. KYTRIL [Concomitant]
  6. COMPAZINE [Concomitant]
  7. LORAZEPAM [Concomitant]

REACTIONS (2)
  - CHILLS [None]
  - PYREXIA [None]
